FAERS Safety Report 8221185-5 (Version None)
Quarter: 2012Q1

REPORT INFORMATION
  Report Type: 
  Country: None (occurrence: None)
  Receive Date: 20120320
  Receipt Date: 20120312
  Transmission Date: 20120608
  Serious: Yes (Other)
  Sender: FDA-Public Use
  Company Number: PHHY2012BR022750

PATIENT
  Sex: Female

DRUGS (2)
  1. FORMOTEROL FUMARATE [Suspect]
     Indication: DYSPNOEA
     Dosage: CAPSULE OF EACH TREATMENT BID
  2. FORMOTEROL FUMARATE [Suspect]
     Dosage: 2 CAPSULES OF EACH TREATMENT TID

REACTIONS (2)
  - ASTHMA [None]
  - BREATH SOUNDS ABNORMAL [None]
